FAERS Safety Report 8540555-9 (Version None)
Quarter: 2012Q3

REPORT INFORMATION
  Report Type: 
  Country: None (occurrence: None)
  Receive Date: 20120726
  Receipt Date: 20110805
  Transmission Date: 20120928
  Serious: No
  Sender: FDA-Public Use
  Company Number: US-ASTRAZENECA-2011SE47191

PATIENT
  Age: 42 Year
  Sex: Female
  Weight: 68.9 kg

DRUGS (5)
  1. PEPSID [Concomitant]
  2. SEROQUEL [Suspect]
     Indication: BIPOLAR DISORDER
     Route: 048
     Dates: start: 20060101, end: 20110731
  3. SYNTHROID [Concomitant]
  4. KLONOPIN [Concomitant]
  5. LITHIUM CARBONATE [Concomitant]

REACTIONS (5)
  - DRUG DOSE OMISSION [None]
  - THINKING ABNORMAL [None]
  - ABNORMAL BEHAVIOUR [None]
  - ADVERSE EVENT [None]
  - INSOMNIA [None]
